FAERS Safety Report 7778099-4 (Version None)
Quarter: 2011Q3

REPORT INFORMATION
  Report Type: 
  Country: None (occurrence: None)
  Receive Date: 20110926
  Receipt Date: 20110920
  Transmission Date: 20111222
  Serious: Yes (Other)
  Sender: FDA-Public Use
  Company Number: DE-BAYER-2011-089234

PATIENT
  Age: 48 Year
  Sex: Male
  Weight: 75 kg

DRUGS (1)
  1. PRIMOVIST [Suspect]
     Dosage: UNK
     Route: 042
     Dates: start: 20110408, end: 20110408

REACTIONS (2)
  - VOMITING [None]
  - CARDIOVASCULAR INSUFFICIENCY [None]
